FAERS Safety Report 16055685 (Version 5)
Quarter: 2019Q3

REPORT INFORMATION
  Report Type: Spontaneous
  Country: US (occurrence: US)
  Receive Date: 20190311
  Receipt Date: 20190703
  Transmission Date: 20191004
  Serious: No
  Sender: FDA-Public Use
  Company Number: US-BIOGEN-2019BI00705396

PATIENT
  Sex: Female

DRUGS (2)
  1. TYSABRI [Suspect]
     Active Substance: NATALIZUMAB
     Dosage: TYSABRI INFUSIONS EVERY 6 TO 8 WEEKS
     Route: 065
  2. TYSABRI [Suspect]
     Active Substance: NATALIZUMAB
     Indication: MULTIPLE SCLEROSIS
     Route: 065
     Dates: start: 20130715

REACTIONS (4)
  - Atypical pneumonia [Unknown]
  - Influenza [Unknown]
  - Prescribed underdose [Unknown]
  - Vascular pain [Unknown]
